FAERS Safety Report 17197686 (Version 1)
Quarter: 2019Q4

REPORT INFORMATION
  Report Type: Spontaneous
  Country: CH (occurrence: CH)
  Receive Date: 20191224
  Receipt Date: 20191224
  Transmission Date: 20200122
  Serious: Yes (Hospitalization)
  Sender: FDA-Public Use
  Company Number: CH-009507513-1912CHE009182

PATIENT
  Age: 54 Year
  Sex: Female
  Weight: 85.9 kg

DRUGS (20)
  1. FORTECORTIN [Concomitant]
     Active Substance: DEXAMETHASONE
     Dosage: 12 MILLIGRAM, 15OCT2019 AS WELL AS PREMEDICATION; IN TOTAL
     Dates: start: 20191106, end: 20191106
  2. OXYCONTIN [Concomitant]
     Active Substance: OXYCODONE HYDROCHLORIDE
     Dosage: 40 MILLIGRAM, QD
     Route: 048
     Dates: start: 20191104
  3. KEYTRUDA [Suspect]
     Active Substance: PEMBROLIZUMAB
     Dosage: 200 MILLIGRAM, CYCLICAL
     Dates: start: 20191106, end: 20191106
  4. ALIMTA [Suspect]
     Active Substance: PEMETREXED DISODIUM
     Dosage: 1 DOSAGE FORM, CYCLICAL, 2ND CYCLE FROM 06NOV2019 WITH DOSE REDUCTION TO 80% COMPARED TO 1ST CYCLE W
     Dates: start: 20191015, end: 20191015
  5. CIPRALEX [Concomitant]
     Active Substance: ESCITALOPRAM OXALATE
     Dosage: 10 MILLIGRAM, QD
     Route: 048
  6. IMOVANE [Concomitant]
     Active Substance: ZOPICLONE
     Dosage: 7.5 MILLIGRAM, QD
     Route: 048
  7. OXYCONTIN [Concomitant]
     Active Substance: OXYCODONE HYDROCHLORIDE
     Dosage: 20 MILLIGRAM, QD
     Route: 048
     Dates: start: 20191104
  8. CHOLECALCIFEROL [Concomitant]
     Active Substance: CHOLECALCIFEROL
     Dosage: 1 DOSAGE FORM, QD, COLECALCIFEROL: 4000IU/ML
     Route: 048
  9. EMEND [Concomitant]
     Active Substance: APREPITANT
     Dosage: 125 MILLIGRAM, 15OCT2019 AS WELL AS PREMEDICATION; IN TOTAL
     Dates: start: 20191106, end: 20191106
  10. EMEND [Concomitant]
     Active Substance: APREPITANT
     Dosage: 80 MILLIGRAM, QD
     Dates: start: 20191107, end: 20191108
  11. HYDROCORTONE [Concomitant]
     Active Substance: HYDROCORTISONE
     Dosage: 30 MILLIGRAM, QD, HYDROCORTISONE 10MG
     Route: 048
  12. FOLIC ACID. [Concomitant]
     Active Substance: FOLIC ACID
     Dosage: UNK
     Route: 048
     Dates: start: 201910
  13. PALONOSETRON HYDROCHLORIDE. [Concomitant]
     Active Substance: PALONOSETRON HYDROCHLORIDE
     Dosage: 0.25 MILLIGRAM, 15OCT2019 AS WELL AS PREMEDICATION; IN TOTAL
     Dates: start: 20191106, end: 20191106
  14. HYDROCORTONE [Concomitant]
     Active Substance: HYDROCORTISONE
     Dosage: 50 MILLIGRAM, QD, HYDROCORTISONE 10MG
     Route: 048
     Dates: start: 20191115
  15. MOVICOL [Concomitant]
     Active Substance: POLYETHYLENE GLYCOL 3350\POTASSIUM CHLORIDE\SODIUM BICARBONATE\SODIUM CHLORIDE
     Dosage: 1 DOSAGE FORM, QD
     Route: 048
  16. ALIMTA [Suspect]
     Active Substance: PEMETREXED DISODIUM
     Dosage: 400 MILLIGRAM/SQ. METER, CYCLICAL, 2ND CYCLE FROM 06NOV2019 WITH DOSE REDUCTION TO 80% COMPARED TO 1
     Dates: start: 20191106, end: 20191106
  17. CARBOPLATIN. [Suspect]
     Active Substance: CARBOPLATIN
     Dosage: 1 DOSAGE FORM, CYCLICAL, 2ND CYCLE FROM 06NOV2019 WITH DOSE REDUCTION TO 80% COMPARED TO 1ST CYCLE W
     Route: 041
     Dates: start: 20191015, end: 20191015
  18. VITARUBIN (CYANOCOBALAMIN) [Concomitant]
     Dosage: UNK
     Route: 048
     Dates: start: 201910
  19. CARBOPLATIN. [Suspect]
     Active Substance: CARBOPLATIN
     Dosage: 368 MILLIGRAM, CYCLICAL, 2ND CYCLE FROM 06NOV2019 WITH DOSE REDUCTION TO 80% COMPARED TO 1ST CYCLE W
     Route: 041
     Dates: start: 20191106, end: 20191106
  20. SURMONTIL [Concomitant]
     Active Substance: TRIMIPRAMINE MALEATE
     Dosage: 100 MILLIGRAM, QD
     Route: 048

REACTIONS (8)
  - Haemorrhagic erosive gastritis [Recovering/Resolving]
  - Pancytopenia [Recovering/Resolving]
  - Acute kidney injury [Recovered/Resolved]
  - Contraindication to medical treatment [Recovering/Resolving]
  - Pancytopenia [Recovering/Resolving]
  - Colitis [Recovering/Resolving]
  - Mucosal inflammation [Recovering/Resolving]
  - Oesophageal candidiasis [Recovering/Resolving]

NARRATIVE: CASE EVENT DATE: 20191015
